FAERS Safety Report 5147113-7 (Version None)
Quarter: 2006Q4

REPORT INFORMATION
  Report Type: 
  Country: None (occurrence: None)
  Receive Date: 20061109
  Receipt Date: 20061107
  Transmission Date: 20070319
  Serious: Yes (Death, Hospitalization)
  Sender: FDA-Public Use
  Company Number: US-BRISTOL-MYERS SQUIBB COMPANY-13568274

PATIENT
  Age: 66 Year
  Sex: Male
  Weight: 81 kg

DRUGS (11)
  1. PACLITAXEL [Suspect]
     Indication: NON-SMALL CELL LUNG CANCER STAGE IV
     Route: 042
     Dates: start: 20060417, end: 20060417
  2. PARAPLATIN [Suspect]
     Indication: NON-SMALL CELL LUNG CANCER STAGE IV
     Route: 042
     Dates: start: 20060417, end: 20060417
  3. TLK286 [Suspect]
     Indication: NON-SMALL CELL LUNG CANCER STAGE IV
     Route: 042
     Dates: start: 20060417, end: 20060417
  4. ATENOLOL [Concomitant]
     Dates: start: 20030923
  5. FRAGMIN [Concomitant]
     Dates: start: 20060223
  6. LACTULOSE [Concomitant]
     Dates: start: 20060330
  7. TESSALON [Concomitant]
     Dates: start: 20060321
  8. VICODIN [Concomitant]
     Dates: start: 20060417
  9. TYLENOL W/ CODEINE [Concomitant]
     Dates: start: 20060412
  10. OXYCODONE HCL [Concomitant]
     Dates: start: 20060417
  11. ARIXTRA [Concomitant]

REACTIONS (15)
  - ABDOMINAL PAIN [None]
  - ALANINE AMINOTRANSFERASE INCREASED [None]
  - ANAEMIA [None]
  - ASPARTATE AMINOTRANSFERASE INCREASED [None]
  - BACK PAIN [None]
  - BLOOD MAGNESIUM DECREASED [None]
  - BLOOD POTASSIUM DECREASED [None]
  - DEHYDRATION [None]
  - ISCHAEMIA [None]
  - JAUNDICE CHOLESTATIC [None]
  - LYMPHADENOPATHY [None]
  - MALIGNANT NEOPLASM PROGRESSION [None]
  - NON-SMALL CELL LUNG CANCER [None]
  - PANCREATITIS [None]
  - THROMBOCYTOPENIA [None]
